FAERS Safety Report 21535634 (Version 1)
Quarter: 2022Q4

REPORT INFORMATION
  Report Type: Report from Study
  Country: US (occurrence: US)
  Receive Date: 20221101
  Receipt Date: 20221101
  Transmission Date: 20230112
  Serious: No
  Sender: FDA-Public Use
  Company Number: US-ABBVIE-4182378

PATIENT
  Sex: Female

DRUGS (8)
  1. VENCLEXTA [Suspect]
     Active Substance: VENETOCLAX
     Indication: Plasma cell myeloma
     Dosage: FORM STRENGTH 100 MILLIGRAM?TOOK WITH A MEAL AND WATER AT SAME TIME EACH DAY, SWALLOW WHOLE.
     Route: 048
     Dates: start: 20220923
  2. Cardizem CD/Cartia XT [Concomitant]
     Indication: Product used for unknown indication
     Dosage: FORM STRENGTH 180 MILLIGRAM ?24 HOUR CAPSULE
     Route: 048
     Dates: start: 20221002
  3. Klor-Con M/KUR [Concomitant]
     Indication: Product used for unknown indication
     Dosage: FORM STRENGTH 20 MILLIEQUIVALENTS WITH BREAKFAST
     Route: 048
     Dates: start: 20220926
  4. DIOVAN [Concomitant]
     Active Substance: VALSARTAN
     Indication: Product used for unknown indication
     Dosage: FORM STRENGTH 80 MILLIGRAM
     Route: 048
     Dates: start: 20221002
  5. PROMACTA [Concomitant]
     Active Substance: ELTROMBOPAG OLAMINE
     Indication: Product used for unknown indication
     Dosage: ADMINISTERED 50 MILLIGRAM ON AN EMPTY STOMACH, ONE HOUR BEFORE OR TWO HOURS AFTER A MEAL.?FORM ST...
     Route: 048
     Dates: start: 20220923
  6. DECADRON [Concomitant]
     Active Substance: DEXAMETHASONE
     Indication: Product used for unknown indication
     Dosage: FORM STRENGTH FOUR MILLIGRAM?TOOK FIVE TABLETS ONCE A WEEK
     Route: 048
     Dates: start: 20220923
  7. ZYLOPRIM [Concomitant]
     Active Substance: ALLOPURINOL
     Indication: Product used for unknown indication
     Dosage: FORM STRENGTH 300 MILLIGRAM
     Route: 048
     Dates: start: 20220801
  8. ZOVIRAX [Concomitant]
     Active Substance: ACYCLOVIR
     Indication: Product used for unknown indication
     Dosage: FORM STRENGTH 400 MILLIGRAM
     Route: 048
     Dates: start: 20221002

REACTIONS (1)
  - Off label use [Unknown]
